FAERS Safety Report 8127706-5 (Version None)
Quarter: 2011Q4

REPORT INFORMATION
  Report Type: 
  Country: None (occurrence: None)
  Receive Date: 20111230
  Receipt Date: 20110517
  Transmission Date: 20120403
  Serious: Yes (Other)
  Sender: FDA-Public Use
  Company Number: 279713USA

PATIENT
  Age: 55 Year
  Sex: Female

DRUGS (2)
  1. DILTIAZEM HYDROCHLORIDE [Suspect]
  2. LATUDA [Suspect]
     Indication: BIPOLAR DISORDER
     Dosage: 80 MG (40 MG,2 IN 1 D),ORAL
     Route: 048
     Dates: start: 20110415

REACTIONS (2)
  - SWELLING FACE [None]
  - OEDEMA PERIPHERAL [None]
